FAERS Safety Report 6913687-6 (Version None)
Quarter: 2010Q3

REPORT INFORMATION
  Report Type: 
  Country: None (occurrence: None)
  Receive Date: 20100809
  Receipt Date: 20100729
  Transmission Date: 20110219
  Serious: Yes (Hospitalization)
  Sender: FDA-Public Use
  Company Number: US-JNJFOC-20100704911

PATIENT
  Sex: Female
  Weight: 87.2 kg

DRUGS (7)
  1. TAPENTADOL [Suspect]
     Route: 048
  2. TAPENTADOL [Suspect]
     Indication: DIABETIC NEUROPATHY
     Route: 048
  3. TAPENTADOL [Suspect]
     Route: 048
  4. TAPENTADOL [Suspect]
     Route: 048
  5. METFORMIN HCL [Concomitant]
     Indication: TYPE 2 DIABETES MELLITUS
     Dosage: TWICE DAILY
  6. LISINOPRIL [Concomitant]
     Indication: HYPERTENSION
     Dosage: DAILY
  7. ADVIL [Concomitant]
     Indication: DIABETIC NEUROPATHY
     Dosage: AS NEEDED

REACTIONS (1)
  - GASTROINTESTINAL DISORDER [None]
